FAERS Safety Report 14308319 (Version 1)
Quarter: 2017Q4

REPORT INFORMATION
  Report Type: Spontaneous
  Country: GB (occurrence: GB)
  Receive Date: 20171220
  Receipt Date: 20171220
  Transmission Date: 20180321
  Serious: Yes (Hospitalization, Other)
  Sender: FDA-Public Use
  Company Number: GB-APOTEX-2017AP023653

PATIENT
  Age: 70 Year
  Sex: Female

DRUGS (6)
  1. VENAXX XL PROLONGED-RELEASE CAPSULES [Suspect]
     Active Substance: VENLAFAXINE HYDROCHLORIDE
     Indication: DEPRESSION
     Dosage: 225 MG, QD
     Route: 065
     Dates: start: 201311
  2. OLANZAPINE APOTEX [Suspect]
     Active Substance: OLANZAPINE
     Indication: DEPRESSION
     Dosage: 10 MG, Q.H.S.
     Route: 065
  3. MIRTAZAPINE. [Concomitant]
     Active Substance: MIRTAZAPINE
     Indication: DEPRESSION
     Dosage: 15 MG, DAILY
     Route: 065
  4. VENAXX XL PROLONGED-RELEASE CAPSULES [Suspect]
     Active Substance: VENLAFAXINE HYDROCHLORIDE
     Dosage: 150 MG, QD
     Route: 065
     Dates: start: 201412
  5. OLANZAPINE APOTEX [Suspect]
     Active Substance: OLANZAPINE
     Dosage: 2.5 MG, QD
     Route: 065
  6. OLANZAPINE APOTEX [Suspect]
     Active Substance: OLANZAPINE
     Dosage: 10 MG, QD
     Route: 065
     Dates: start: 201311

REACTIONS (6)
  - Electrocardiogram QT prolonged [Recovered/Resolved]
  - Weight increased [Recovered/Resolved]
  - Bundle branch block right [Unknown]
  - Electrocardiogram ST segment abnormal [Unknown]
  - Palpitations [Unknown]
  - Tachycardia [Unknown]
